FAERS Safety Report 9513703 (Version 1)
Quarter: 2013Q1

REPORT INFORMATION
  Report Type: Spontaneous
  Country: US (occurrence: None)
  Receive Date: 20130305
  Receipt Date: 20130305
  Transmission Date: 20140127
  Serious: Yes (Other)
  Sender: FDA-Public Use
  Company Number: 163-21880-12102588

PATIENT
  Age: 65 Year
  Sex: Female
  Weight: 60.33 kg

DRUGS (6)
  1. REVLIMID [Suspect]
     Indication: PLASMA CELL MYELOMA
     Dosage: 10 MG, 21 IN 28 D, PO
     Route: 048
     Dates: start: 20120924
  2. FERROUS SULFATE (FERROUS SULFATE) (UNKNOWN) [Concomitant]
  3. CALCIUM CARBONATE (CALCIUM CARBONATE) (UNKNOWN) [Concomitant]
  4. VITAMIN D (ERGOCALICIFEROL) (UNKNOWN)^ [Concomitant]
  5. ATORVASTATIN (ATORVASTATIN) (UNKNOWN) [Concomitant]
  6. ASPIRIN (ACETYLSALICYLIC ACID) (UNKNOWN) (ACETYLSALICYLIC ACID) [Concomitant]

REACTIONS (1)
  - Constipation [None]
